FAERS Safety Report 12694402 (Version 3)
Quarter: 2016Q4

REPORT INFORMATION
  Report Type: Spontaneous
  Country: VN (occurrence: VN)
  Receive Date: 20160829
  Receipt Date: 20161011
  Transmission Date: 20170207
  Serious: Yes (Life-Threatening, Hospitalization)
  Sender: FDA-Public Use
  Company Number: VN-GE HEALTHCARE MEDICAL DIAGNOSTICS-OMPQ-PR-1608S-1527

PATIENT
  Age: 32 Year
  Sex: Male

DRUGS (2)
  1. OMNIPAQUE [Suspect]
     Active Substance: IOHEXOL
     Indication: DIAGNOSTIC PROCEDURE
  2. OMNIPAQUE [Suspect]
     Active Substance: IOHEXOL
     Indication: BRACHIAL PLEXUS INJURY
     Route: 037
     Dates: start: 20160821, end: 20160821

REACTIONS (10)
  - Tachycardia [Unknown]
  - Dyspnoea [Not Recovered/Not Resolved]
  - Pulse abnormal [Not Recovered/Not Resolved]
  - Chest pain [Unknown]
  - Oxygen saturation decreased [Unknown]
  - Panic reaction [Not Recovered/Not Resolved]
  - Diplegia [Recovered/Resolved]
  - Hypertension [Unknown]
  - Pulmonary oedema [Not Recovered/Not Resolved]
  - Nervousness [Not Recovered/Not Resolved]

NARRATIVE: CASE EVENT DATE: 20160821
